FAERS Safety Report 19112993 (Version 1)
Quarter: 2021Q2

REPORT INFORMATION
  Report Type: Report from Study
  Country: ES (occurrence: ES)
  Receive Date: 20210408
  Receipt Date: 20210408
  Transmission Date: 20210717
  Serious: Yes (Death)
  Sender: FDA-Public Use
  Company Number: ES-PFIZER INC-2021375069

PATIENT
  Age: 51 Year
  Sex: Male

DRUGS (5)
  1. DOXORUBICIN HCL [Suspect]
     Active Substance: DOXORUBICIN HYDROCHLORIDE
     Indication: NON-HODGKIN^S LYMPHOMA
     Dosage: 10 MG/M2, CYCLIC  10 MG/M2/DAY X 5 CONTINUOUS INFUSION
  2. PREDNISONE. [Suspect]
     Active Substance: PREDNISONE
     Indication: NON-HODGKIN^S LYMPHOMA
     Dosage: 60 MG/M2, CYCLIC  60 MG/M2/DAY REPEATED EVERY 3 TO 4 WEEKS
     Route: 048
  3. VINCRISTINE SULFATE. [Suspect]
     Active Substance: VINCRISTINE SULFATE
     Indication: NON-HODGKIN^S LYMPHOMA
     Dosage: 0.4 MG/M2, CYCLIC 0.4 MG/M2/DAY X 5 CONTINUOUS INFUSION
  4. ETOPOSIDE. [Suspect]
     Active Substance: ETOPOSIDE
     Indication: NON-HODGKIN^S LYMPHOMA
     Dosage: 50 MG/M2, CYCLIC, 50 MG/M2/DAY X 4CONTINUOUS INFUSION
  5. CYCLOPHOSPHAMIDE. [Suspect]
     Active Substance: CYCLOPHOSPHAMIDE
     Indication: NON-HODGKIN^S LYMPHOMA
     Dosage: 750 MG/M2, CYCLIC  ON 6 TH DAY
     Route: 040

REACTIONS (1)
  - Pneumocystis jirovecii pneumonia [Fatal]
